FAERS Safety Report 21920558 (Version 1)
Quarter: 2023Q1

REPORT INFORMATION
  Report Type: Spontaneous
  Country: US (occurrence: US)
  Receive Date: 20230127
  Receipt Date: 20230127
  Transmission Date: 20230418
  Serious: No
  Sender: FDA-Public Use
  Company Number: US-AMNEAL PHARMACEUTICALS-2022-AMRX-03539

PATIENT
  Sex: Male
  Weight: 43 kg

DRUGS (2)
  1. TRIAMCINOLONE ACETONIDE [Suspect]
     Active Substance: TRIAMCINOLONE ACETONIDE
     Indication: Arthropod sting
     Dosage: 20 MG
     Route: 030
     Dates: start: 20220729, end: 20220729
  2. ADRENACLICK [Suspect]
     Active Substance: EPINEPHRINE
     Indication: Arthropod sting
     Dosage: UNK
     Route: 065
     Dates: start: 20220729, end: 20220729

REACTIONS (3)
  - Vasoconstriction [Not Recovered/Not Resolved]
  - Skin discolouration [Not Recovered/Not Resolved]
  - Injection site atrophy [Not Recovered/Not Resolved]

NARRATIVE: CASE EVENT DATE: 20220101
